FAERS Safety Report 5916010-9 (Version None)
Quarter: 2008Q4

REPORT INFORMATION
  Report Type: 
  Country: None (occurrence: None)
  Receive Date: 20081013
  Receipt Date: 20080929
  Transmission Date: 20090506
  Serious: Yes (Hospitalization, Other)
  Sender: FDA-Public Use
  Company Number: US-JNJFOC-20080705440

PATIENT

DRUGS (6)
  1. REMICADE [Suspect]
     Route: 042
  2. REMICADE [Suspect]
     Route: 042
  3. REMICADE [Suspect]
     Route: 042
  4. REMICADE [Suspect]
     Route: 042
  5. REMICADE [Suspect]
     Route: 042
  6. REMICADE [Suspect]
     Indication: RHEUMATOID ARTHRITIS
     Route: 042

REACTIONS (11)
  - ANXIETY [None]
  - COLITIS [None]
  - DEHYDRATION [None]
  - DEPRESSION [None]
  - ENTEROCOLITIS HAEMORRHAGIC [None]
  - GASTRITIS HAEMORRHAGIC [None]
  - GASTROENTERITIS [None]
  - HYPERTHYROIDISM [None]
  - HYPONATRAEMIA [None]
  - INTESTINAL ISCHAEMIA [None]
  - SYNCOPE [None]
